FAERS Safety Report 6435700-5 (Version None)
Quarter: 2009Q4

REPORT INFORMATION
  Report Type: 
  Country: None (occurrence: None)
  Receive Date: 20091111
  Receipt Date: 20091108
  Transmission Date: 20100525
  Serious: Yes (Life-Threatening, Other)
  Sender: FDA-Public Use
  Company Number: PHHY2009IL48611

PATIENT
  Age: 28 Year
  Sex: Female

DRUGS (3)
  1. EXJADE [Suspect]
     Indication: THALASSAEMIA BETA
     Dosage: 2 G, DAILY
     Route: 048
  2. ALENDRONATE SODIUM [Concomitant]
  3. INSULIN [Concomitant]

REACTIONS (5)
  - CARDIAC ARREST [None]
  - CARDIAC PACEMAKER INSERTION [None]
  - DRUG INEFFECTIVE [None]
  - RESUSCITATION [None]
  - SERUM FERRITIN INCREASED [None]
